FAERS Safety Report 7936673-6 (Version None)
Quarter: 2011Q4

REPORT INFORMATION
  Report Type: 
  Country: None (occurrence: None)
  Receive Date: 20111123
  Receipt Date: 20111111
  Transmission Date: 20120403
  Serious: Yes (Disabling)
  Sender: FDA-Public Use
  Company Number: GB-BAYER-2011-107385

PATIENT
  Age: 55 Year
  Sex: Male

DRUGS (2)
  1. CIPROFLAXACIN [Suspect]
     Indication: POST PROCEDURAL INFECTION
     Dosage: 500 MG, BID
     Dates: start: 20101201, end: 20110101
  2. CIPROFLAXACIN [Suspect]
     Indication: BIOPSY PROSTATE
     Dosage: UNK
     Dates: start: 20100901, end: 20100101

REACTIONS (33)
  - PAIN [None]
  - HEADACHE [None]
  - FIBROMYALGIA [None]
  - DEPRESSION [None]
  - COGNITIVE DISORDER [None]
  - MUSCLE ATROPHY [None]
  - TEARFULNESS [None]
  - HYPOAESTHESIA [None]
  - FEELING ABNORMAL [None]
  - MYALGIA [None]
  - TREMOR [None]
  - URINE ANALYSIS ABNORMAL [None]
  - RESTLESSNESS [None]
  - INSOMNIA [None]
  - IRRITABILITY [None]
  - SHOCK [None]
  - DISTURBANCE IN ATTENTION [None]
  - PALMAR ERYTHEMA [None]
  - CONFUSIONAL STATE [None]
  - BURNING SENSATION [None]
  - APATHY [None]
  - PSYCHIATRIC SYMPTOM [None]
  - PERSONALITY CHANGE [None]
  - ARTHRALGIA [None]
  - PROSTATIC PAIN [None]
  - ASTHENIA [None]
  - MALAISE [None]
  - PARAESTHESIA [None]
  - SKIN DISORDER [None]
  - FATIGUE [None]
  - STRESS [None]
  - TINNITUS [None]
  - DISTURBANCE IN SOCIAL BEHAVIOUR [None]
